FAERS Safety Report 25765845 (Version 1)
Quarter: 2025Q3

REPORT INFORMATION
  Report Type: Spontaneous
  Country: US (occurrence: US)
  Receive Date: 20250905
  Receipt Date: 20250905
  Transmission Date: 20251020
  Serious: No
  Sender: DOMPE FARMACEUTICI
  Company Number: US-FARMAPROD-202407-2569

PATIENT
  Sex: Female
  Weight: 70.76 kg

DRUGS (7)
  1. OXERVATE [Suspect]
     Active Substance: CENEGERMIN-BKBJ
     Indication: Corneal neovascularisation
     Route: 047
     Dates: start: 20240702, end: 20240805
  2. OXERVATE [Suspect]
     Active Substance: CENEGERMIN-BKBJ
     Indication: Presbyopia
  3. OXERVATE [Suspect]
     Active Substance: CENEGERMIN-BKBJ
     Indication: Hypermetropia
  4. LINZESS [Concomitant]
     Active Substance: LINACLOTIDE
  5. PREDNISOLONE ACETATE [Concomitant]
     Active Substance: PREDNISOLONE ACETATE
  6. SODIUM SULFATE, POTASSIUM SULFATE, AND MAGNESIUM [Concomitant]
  7. PRED FORTE [Concomitant]
     Active Substance: PREDNISOLONE ACETATE

REACTIONS (4)
  - Ocular discomfort [Unknown]
  - Off label use [Unknown]
  - Ocular hyperaemia [Unknown]
  - Eye inflammation [Unknown]
